FAERS Safety Report 6957594 (Version 1)
Quarter: 2020Q3

REPORT INFORMATION
  Report Type: Report from Study
  Country: US (occurrence: US)
  Receive Date: 20090401
  Receipt Date: 20090401
  Transmission Date: 20201104
  Serious: Yes (Other)
  Sender: FDA-Public Use
  Company Number: US-ROCHE-623062

PATIENT

DRUGS (3)
  1. INTERFERON ALFA?2A [Suspect]
     Active Substance: INTERFERON ALFA-2A
     Indication: LARYNGEAL DYSPLASIA
     Route: 065
  2. ISOTRETINOIN. [Suspect]
     Active Substance: ISOTRETINOIN
     Indication: LARYNGEAL DYSPLASIA
     Dosage: DAILY
     Route: 065
  3. ALPHA?TOCOPHEROL ACETATE [Suspect]
     Active Substance: .ALPHA.-TOCOPHEROL ACETATE
     Indication: LARYNGEAL DYSPLASIA
     Dosage: DAILY
     Route: 065

REACTIONS (2)
  - Neoplasm malignant [Unknown]
  - Laryngeal cancer [Unknown]
